FAERS Safety Report 25391060 (Version 1)
Quarter: 2025Q2

REPORT INFORMATION
  Report Type: Spontaneous
  Country: US (occurrence: US)
  Receive Date: 20250603
  Receipt Date: 20250603
  Transmission Date: 20250717
  Serious: No
  Sender: DENDREON PHARMACEUTICALS LLC
  Company Number: US-DENDREON PHARMACEUTICAL LLC-2024DEN000118

PATIENT

DRUGS (4)
  1. PROVENGE [Suspect]
     Active Substance: SIPULEUCEL-T
     Indication: Prostate cancer metastatic
     Route: 042
     Dates: start: 20240425, end: 20240425
  2. DAROLUTAMIDE [Concomitant]
     Active Substance: DAROLUTAMIDE
     Indication: Prostate cancer metastatic
     Route: 065
  3. FIRMAGON [Concomitant]
     Active Substance: DEGARELIX ACETATE
     Indication: Prostate cancer metastatic
     Route: 065
  4. ELIQUIS [Concomitant]
     Active Substance: APIXABAN
     Indication: Deep vein thrombosis
     Route: 065

REACTIONS (3)
  - Influenza like illness [Recovered/Resolved]
  - Myalgia [Not Recovered/Not Resolved]
  - Neuralgia [Not Recovered/Not Resolved]

NARRATIVE: CASE EVENT DATE: 20240401
